FAERS Safety Report 5022301-9 (Version None)
Quarter: 2006Q2

REPORT INFORMATION
  Report Type: 
  Country: None (occurrence: None)
  Receive Date: 20060609
  Receipt Date: 20060601
  Transmission Date: 20061013
  Serious: Yes (Other)
  Sender: FDA-Public Use
  Company Number: FI-GLAXOSMITHKLINE-B0426697A

PATIENT
  Sex: Female

DRUGS (4)
  1. FLIXONASE [Suspect]
     Dosage: 50MG UNKNOWN
     Route: 065
  2. CETIRIZINE HCL [Concomitant]
  3. ATROVENT [Concomitant]
  4. SERETIDE [Concomitant]

REACTIONS (5)
  - APHONIA [None]
  - ASTHMA [None]
  - HEADACHE [None]
  - ILL-DEFINED DISORDER [None]
  - PHARMACEUTICAL PRODUCT COMPLAINT [None]
